FAERS Safety Report 7208761-3 (Version None)
Quarter: 2011Q1

REPORT INFORMATION
  Report Type: 
  Country: None (occurrence: None)
  Receive Date: 20110104
  Receipt Date: 20101230
  Transmission Date: 20110831
  Serious: Yes (Hospitalization)
  Sender: FDA-Public Use
  Company Number: US-PFIZER INC-2010182290

PATIENT
  Sex: Male
  Weight: 102.4 kg

DRUGS (2)
  1. LIPITOR [Suspect]
     Dosage: 80 MG, DAILY
     Route: 048
  2. NORVASC [Concomitant]
     Dosage: 10 MG, UNK

REACTIONS (1)
  - CEREBROVASCULAR ACCIDENT [None]
